FAERS Safety Report 8535505-5 (Version None)
Quarter: 2012Q3

REPORT INFORMATION
  Report Type: 
  Country: None (occurrence: None)
  Receive Date: 20120718
  Receipt Date: 20120718
  Transmission Date: 20120928
  Serious: Yes (Other)
  Sender: FDA-Public Use
  Company Number: None

PATIENT
  Sex: Female
  Weight: 63.5036 kg

DRUGS (1)
  1. CYMBALTA [Suspect]
     Indication: FIBROMYALGIA
     Dosage: 60 MG 1X DAILY PO
     Route: 048
     Dates: start: 20120101, end: 20120710

REACTIONS (18)
  - DIZZINESS [None]
  - RASH [None]
  - UNEVALUABLE EVENT [None]
  - CRYING [None]
  - CHILLS [None]
  - MUSCULOSKELETAL PAIN [None]
  - FATIGUE [None]
  - HEADACHE [None]
  - DRUG WITHDRAWAL SYNDROME [None]
  - INSOMNIA [None]
  - NAUSEA [None]
  - GASTRIC DISORDER [None]
  - FEELING ABNORMAL [None]
  - NECK PAIN [None]
  - VOMITING [None]
  - APHTHOUS STOMATITIS [None]
  - MALAISE [None]
  - ABNORMAL DREAMS [None]
